FAERS Safety Report 5446870-X (Version None)
Quarter: 2007Q3

REPORT INFORMATION
  Report Type: 
  Country: None (occurrence: None)
  Receive Date: 20070907
  Receipt Date: 20070828
  Transmission Date: 20080115
  Serious: Yes (Other)
  Sender: FDA-Public Use
  Company Number: CL-PFIZER INC-2007073431

PATIENT
  Sex: Male

DRUGS (1)
  1. VARENICLINE TABLETS [Suspect]

REACTIONS (1)
  - BLOOD PRESSURE DIASTOLIC INCREASED [None]
